FAERS Safety Report 21372071 (Version 1)
Quarter: 2022Q3

REPORT INFORMATION
  Report Type: Spontaneous
  Country: CN (occurrence: CN)
  Receive Date: 20220923
  Receipt Date: 20220923
  Transmission Date: 20221027
  Serious: Yes (Other)
  Sender: FDA-Public Use
  Company Number: CN-009507513-2209CHN006482

PATIENT
  Age: 73 Year
  Sex: Female
  Weight: 37.7 kg

DRUGS (1)
  1. CILASTATIN SODIUM\IMIPENEM [Suspect]
     Active Substance: CILASTATIN SODIUM\IMIPENEM
     Indication: Kidney infection
     Dosage: 1G, EVERY 12 HOURS
     Route: 041
     Dates: start: 20220820, end: 20220822

REACTIONS (4)
  - Seizure [Recovering/Resolving]
  - Epilepsy [Recovering/Resolving]
  - Uraemic encephalopathy [Recovering/Resolving]
  - Product use issue [Unknown]

NARRATIVE: CASE EVENT DATE: 20220801
